FAERS Safety Report 6755396-2 (Version None)
Quarter: 2010Q2

REPORT INFORMATION
  Report Type: 
  Country: None (occurrence: None)
  Receive Date: 20100604
  Receipt Date: 20100525
  Transmission Date: 20101027
  Serious: Yes (Other)
  Sender: FDA-Public Use
  Company Number: US-PFIZER INC-2010040181

PATIENT
  Sex: Female
  Weight: 59 kg

DRUGS (4)
  1. LYRICA [Suspect]
     Indication: FIBROMYALGIA
     Dosage: 75 MG, 2X/DAY
     Route: 048
     Dates: start: 20100319, end: 20100319
  2. LYRICA [Suspect]
     Indication: MUSCLE SPASMS
  3. LYRICA [Suspect]
     Indication: PAIN
  4. ENBREL [Suspect]
     Indication: RHEUMATOID ARTHRITIS
     Dosage: 25 MG, TWO TIMES A WEEK
     Route: 058
     Dates: end: 20091201

REACTIONS (8)
  - DECREASED IMMUNE RESPONSIVENESS [None]
  - DISTURBANCE IN ATTENTION [None]
  - DYSARTHRIA [None]
  - FATIGUE [None]
  - GAIT DISTURBANCE [None]
  - MOTOR DYSFUNCTION [None]
  - VERTIGO [None]
  - VISION BLURRED [None]
